FAERS Safety Report 7632400-0 (Version None)
Quarter: 2011Q3

REPORT INFORMATION
  Report Type: 
  Country: None (occurrence: None)
  Receive Date: 20110725
  Receipt Date: 20100823
  Transmission Date: 20111222
  Serious: Yes (Other)
  Sender: FDA-Public Use
  Company Number: US-BRISTOL-MYERS SQUIBB COMPANY-15251440

PATIENT
  Age: 66 Year
  Sex: Male
  Weight: 93 kg

DRUGS (7)
  1. COUMADIN [Suspect]
     Dosage: FOR2-3 YRS, 4 MG FOR (TUE,THU)5MG REST OF THE WEEK,ON 27JUL10 HELD,ON 29JUL DOSE RDCD TO 4MG DAILY
     Route: 048
  2. ZOCOR [Concomitant]
  3. FOLIC ACID [Concomitant]
  4. ASPIRIN [Concomitant]
  5. DRONEDARONE HCL [Interacting]
     Indication: ATRIAL FIBRILLATION
     Route: 048
     Dates: start: 20100718
  6. MESALAMINE [Concomitant]
  7. LOTREL [Concomitant]
     Dosage: 5 MG ALSO TAKEN

REACTIONS (2)
  - DRUG INTERACTION [None]
  - INTERNATIONAL NORMALISED RATIO INCREASED [None]
